FAERS Safety Report 9639188 (Version 1)
Quarter: 2013Q4

REPORT INFORMATION
  Report Type: Spontaneous
  Country: NO (occurrence: NO)
  Receive Date: 20131022
  Receipt Date: 20131022
  Transmission Date: 20140711
  Serious: Yes (Hospitalization)
  Sender: FDA-Public Use
  Company Number: NO-ROCHE-1291302

PATIENT
  Sex: Male

DRUGS (1)
  1. VALIUM [Suspect]
     Indication: MUSCLE SPASMS
     Route: 065

REACTIONS (1)
  - Syncope [Recovered/Resolved]
